FAERS Safety Report 6237911-0 (Version None)
Quarter: 2009Q2

REPORT INFORMATION
  Report Type: 
  Country: None (occurrence: None)
  Receive Date: 20090621
  Receipt Date: 20090611
  Transmission Date: 20091009
  Serious: Yes (Hospitalization, Other)
  Sender: FDA-Public Use
  Company Number: PHHY2009AT20817

PATIENT
  Age: 50 Year
  Sex: Female
  Weight: 60 kg

DRUGS (3)
  1. EUCREAS [Suspect]
     Dosage: 1 DF, BID
     Dates: start: 20090120, end: 20090508
  2. METFORMIN HCL [Concomitant]
     Dosage: 1000 MG, UNK
     Dates: start: 20081201, end: 20090508
  3. SITAGLIPTIN [Concomitant]
     Dosage: 100 MG, UNK

REACTIONS (4)
  - BLOOD GLUCOSE INCREASED [None]
  - GLYCOSYLATED HAEMOGLOBIN INCREASED [None]
  - THIRST [None]
  - WEIGHT DECREASED [None]
